FAERS Safety Report 7949333-2 (Version None)
Quarter: 2011Q4

REPORT INFORMATION
  Report Type: 
  Country: None (occurrence: None)
  Receive Date: 20111125
  Receipt Date: 20111116
  Transmission Date: 20120403
  Serious: Yes (Hospitalization)
  Sender: FDA-Public Use
  Company Number: 2011VY000044

PATIENT
  Age: 78 Year
  Sex: Male
  Weight: 68.0396 kg

DRUGS (9)
  1. PLAVIX [Concomitant]
  2. BISOPROLOL/HYDROCHLOROTHIAZE [Concomitant]
  3. PREDNISONE ACETATE [Concomitant]
  4. FISH OIL [Concomitant]
  5. TRAMADOL HCL [Suspect]
     Dosage: 200 MG; 300 MG; 200 MG
     Dates: start: 20111108, end: 20111108
  6. TRAMADOL HCL [Suspect]
     Dosage: 200 MG; 300 MG; 200 MG
     Dates: start: 20111109, end: 20111109
  7. TRAMADOL HCL [Suspect]
     Dosage: 200 MG; 300 MG; 200 MG
     Dates: start: 20111107, end: 20111107
  8. SIMVASTATIN [Concomitant]
  9. ASPIRIN [Concomitant]

REACTIONS (9)
  - HEADACHE [None]
  - DELIRIUM [None]
  - SPEECH DISORDER [None]
  - MENTAL STATUS CHANGES [None]
  - AGITATION [None]
  - INSOMNIA [None]
  - CONFUSIONAL STATE [None]
  - NAUSEA [None]
  - HALLUCINATIONS, MIXED [None]
